FAERS Safety Report 16150363 (Version 1)
Quarter: 2019Q2

REPORT INFORMATION
  Report Type: Spontaneous
  Country: US (occurrence: US)
  Receive Date: 20190228
  Receipt Date: 20190228
  Transmission Date: 20190711
  Serious: Yes (Hospitalization)
  Sender: FDA-Public Use
  Company Number: None

PATIENT
  Age: 57 Year
  Sex: Male
  Weight: 252.7 kg

DRUGS (1)
  1. MINOCYCLINE [Suspect]
     Active Substance: MINOCYCLINE\MINOCYCLINE HYDROCHLORIDE
     Indication: OSTEOMYELITIS
     Route: 048
     Dates: start: 20180806, end: 20180904

REACTIONS (2)
  - Bile duct stone [None]
  - Autoimmune hepatitis [None]

NARRATIVE: CASE EVENT DATE: 20181005
